FAERS Safety Report 4312619-7 (Version None)
Quarter: 2004Q1

REPORT INFORMATION
  Report Type: 
  Country: None (occurrence: None)
  Receive Date: 20040305
  Receipt Date: 20040218
  Transmission Date: 20041129
  Serious: Yes (Death)
  Sender: FDA-Public Use
  Company Number: 7516

PATIENT
  Age: 22 Year
  Sex: Male

DRUGS (1)
  1. DROPERIDOL [Suspect]
     Indication: AGITATION
     Dosage: 10 MG ONCE IM
     Route: 030

REACTIONS (13)
  - ATELECTASIS [None]
  - BRAIN OEDEMA [None]
  - COMA [None]
  - DRUG TOXICITY [None]
  - EXCITABILITY [None]
  - EXCORIATION [None]
  - HAEMORRHAGE [None]
  - PULMONARY CONGESTION [None]
  - PULMONARY OEDEMA [None]
  - PULSE ABSENT [None]
  - SINUS BRADYCARDIA [None]
  - SUDDEN DEATH [None]
  - VENTRICULAR FIBRILLATION [None]
